FAERS Safety Report 6055917-1 (Version None)
Quarter: 2009Q1

REPORT INFORMATION
  Report Type: 
  Country: None (occurrence: None)
  Receive Date: 20090128
  Receipt Date: 20090120
  Transmission Date: 20090719
  Serious: Yes (Other)
  Sender: FDA-Public Use
  Company Number: PHBS2008DE05349

PATIENT
  Age: 70 Year
  Sex: Male

DRUGS (3)
  1. ZOLEDRONIC ACID [Suspect]
     Indication: METASTASES TO BONE
     Dosage: 4 MG, QMO
     Route: 042
  2. CORTICOSTEROIDS [Concomitant]
     Indication: PROSTATE CANCER
  3. DOCETAXEL [Concomitant]
     Indication: PROSTATE CANCER

REACTIONS (5)
  - BONE DISORDER [None]
  - MUCOSAL INFLAMMATION [None]
  - OSTEONECROSIS [None]
  - SEQUESTRECTOMY [None]
  - TOOTH EXTRACTION [None]
